FAERS Safety Report 5359386-6 (Version None)
Quarter: 2007Q2

REPORT INFORMATION
  Report Type: 
  Country: None (occurrence: None)
  Receive Date: 20070615
  Receipt Date: 20070606
  Transmission Date: 20071010
  Serious: Yes (Other)
  Sender: FDA-Public Use
  Company Number: AU-PFIZER INC-2007024555

PATIENT
  Sex: Female

DRUGS (4)
  1. ZOLOFT [Suspect]
     Indication: ANXIETY
     Dosage: DAILY DOSE:100MG
     Route: 048
  2. ZOLOFT [Suspect]
     Indication: PANIC ATTACK
  3. VALIUM [Concomitant]
  4. DIAZEPAM [Concomitant]
     Route: 048

REACTIONS (7)
  - ANGER [None]
  - ANXIETY [None]
  - DIARRHOEA [None]
  - FEAR [None]
  - FEAR OF DISEASE [None]
  - PANIC ATTACK [None]
  - SELF-INJURIOUS IDEATION [None]
